FAERS Safety Report 21741431 (Version 1)
Quarter: 2022Q4

REPORT INFORMATION
  Report Type: Spontaneous
  Country: CA (occurrence: CA)
  Receive Date: 20221216
  Receipt Date: 20221216
  Transmission Date: 20230113
  Serious: Yes (Other)
  Sender: FDA-Public Use
  Company Number: CA-ABBVIE-4237889

PATIENT
  Age: 83 Year
  Sex: Male

DRUGS (1)
  1. HUMIRA [Suspect]
     Active Substance: ADALIMUMAB
     Indication: Crohn^s disease
     Route: 058

REACTIONS (8)
  - Deafness [Unknown]
  - Accidental exposure to product [Unknown]
  - Malaise [Unknown]
  - Treatment noncompliance [Unknown]
  - Product temperature excursion issue [Unknown]
  - Ear infection [Unknown]
  - COVID-19 [Unknown]
  - Inappropriate schedule of product administration [Unknown]
